FAERS Safety Report 9120263 (Version 1)
Quarter: 2013Q1

REPORT INFORMATION
  Report Type: Spontaneous
  Country: FR (occurrence: FR)
  Receive Date: 20130226
  Receipt Date: 20130226
  Transmission Date: 20140127
  Serious: Yes (Hospitalization)
  Sender: FDA-Public Use
  Company Number: FR-MERCK-1302FRA007768

PATIENT
  Age: 75 Year
  Sex: Male

DRUGS (7)
  1. SINEMET 100 MG / 10 MG COMPRIME SECABLE [Suspect]
     Dosage: 450 MG, QD
     Route: 048
     Dates: start: 201202, end: 20121009
  2. SINEMET 100 MG / 10 MG COMPRIME SECABLE [Suspect]
     Dosage: 300 MG, QD
     Dates: start: 20121009, end: 20121016
  3. SINEMET 100 MG / 10 MG COMPRIME SECABLE [Suspect]
     Dosage: 150 MG, QD
     Dates: start: 20121016, end: 20121017
  4. COLCHIMAX [Suspect]
     Dosage: 1 DF, TID
     Route: 048
     Dates: end: 20121009
  5. COLCHIMAX [Suspect]
     Dosage: 2 DF, QW
     Dates: start: 20121009
  6. CYMBALTA [Suspect]
     Dosage: 1 DF, QD
     Dates: start: 201204, end: 20121009
  7. SERESTA [Suspect]
     Dosage: 0.5 DF, QD
     Route: 048

REACTIONS (3)
  - Delirium [Recovered/Resolved]
  - Confusional state [Recovered/Resolved]
  - Hallucination [Recovered/Resolved]
